FAERS Safety Report 5815824-3 (Version None)
Quarter: 2008Q3

REPORT INFORMATION
  Report Type: 
  Country: None (occurrence: None)
  Receive Date: 20080721
  Receipt Date: 20080708
  Transmission Date: 20090109
  Serious: Yes (Other)
  Sender: FDA-Public Use
  Company Number: MX-JNJFOC-20080702498

PATIENT
  Age: 12 Year
  Sex: Male
  Weight: 60 kg

DRUGS (1)
  1. TOPAMAX [Suspect]
     Indication: MIGRAINE PROPHYLAXIS
     Route: 048

REACTIONS (3)
  - MYOCARDITIS [None]
  - SYNCOPE [None]
  - VENTRICULAR DYSFUNCTION [None]
